FAERS Safety Report 22539744 (Version 1)
Quarter: 2023Q2

REPORT INFORMATION
  Report Type: Report from Study
  Country: CA (occurrence: CA)
  Receive Date: 20230609
  Receipt Date: 20230609
  Transmission Date: 20230721
  Serious: Yes (Other)
  Sender: FDA-Public Use
  Company Number: CA-APIL-2312983US

PATIENT
  Age: 73 Year
  Sex: Female
  Weight: 81.646 kg

DRUGS (4)
  1. BOTOX [Suspect]
     Active Substance: ONABOTULINUMTOXINA
     Indication: Migraine
     Dosage: TIME INTERVAL: AS NECESSARY: FREQUENCY 1 IN 3 MONTHS.
     Route: 030
     Dates: start: 202012, end: 202012
  2. BUPIVACAINE [Concomitant]
     Active Substance: BUPIVACAINE
     Indication: Migraine
     Dosage: FOR NEURO BLOCKS
  3. TOPIRAMATE [Concomitant]
     Active Substance: TOPIRAMATE
     Indication: Migraine
  4. ELAVIL [Concomitant]
     Active Substance: AMITRIPTYLINE HYDROCHLORIDE
     Indication: Migraine

REACTIONS (5)
  - Spinal fracture [Unknown]
  - Fall [Unknown]
  - Concussion [Unknown]
  - Compression fracture [Unknown]
  - Discomfort [Unknown]

NARRATIVE: CASE EVENT DATE: 20221201
